FAERS Safety Report 10682973 (Version 4)
Quarter: 2015Q1

REPORT INFORMATION
  Report Type: Report from Study
  Country: US (occurrence: US)
  Receive Date: 20141230
  Receipt Date: 20150127
  Transmission Date: 20150720
  Serious: Yes (Hospitalization, Other)
  Sender: FDA-Public Use
  Company Number: US-JNJFOC-20141209876

PATIENT
  Age: 87 Year
  Sex: Female
  Weight: 58 kg

DRUGS (2)
  1. ASPIRIN. [Concomitant]
     Active Substance: ASPIRIN
     Indication: PROPHYLAXIS
     Dosage: LOW DOSE
  2. IMBRUVICA [Suspect]
     Active Substance: IBRUTINIB
     Indication: CHRONIC LYMPHOCYTIC LEUKAEMIA REFRACTORY
     Dosage: EVERY
     Route: 048
     Dates: start: 20140701, end: 20141202

REACTIONS (6)
  - Mitral valve incompetence [Unknown]
  - Aortic valve incompetence [Unknown]
  - Cardiac failure congestive [Recovered/Resolved]
  - Atrial fibrillation [Not Recovered/Not Resolved]
  - Tricuspid valve incompetence [Unknown]
  - Pleural effusion [Unknown]

NARRATIVE: CASE EVENT DATE: 20141128
